FAERS Safety Report 5969030-2 (Version None)
Quarter: 2008Q4

REPORT INFORMATION
  Report Type: 
  Country: None (occurrence: None)
  Receive Date: 20081119
  Receipt Date: 20080829
  Transmission Date: 20090506
  Serious: No
  Sender: FDA-Public Use
  Company Number: WAES 0809USA00047

PATIENT
  Age: 72 Year
  Sex: Male

DRUGS (9)
  1. JANUVIA [Suspect]
     Indication: DIABETES MELLITUS
     Dosage: 100 MG/DAILY/PO
     Route: 048
     Dates: start: 20080601
  2. COZAAR [Concomitant]
  3. LIPITOR [Concomitant]
  4. NIASPAN [Concomitant]
  5. ASCORBIC ACID [Concomitant]
  6. ASPIRIN [Concomitant]
  7. METOPROLOL [Concomitant]
  8. PREDNISONE TAB [Concomitant]
  9. VITAMIN B COMPLEX CAP [Concomitant]

REACTIONS (2)
  - BLOOD CHOLESTEROL INCREASED [None]
  - WEIGHT DECREASED [None]
